FAERS Safety Report 5281019-8 (Version None)
Quarter: 2007Q1

REPORT INFORMATION
  Report Type: 
  Country: None (occurrence: None)
  Receive Date: 20061229
  Receipt Date: 20060815
  Transmission Date: 20070707
  Serious: Yes (Other)
  Sender: FDA-Public Use
  Company Number: 2006UW16270

PATIENT
  Age: 41 Year
  Sex: Female
  Weight: 64.863 kg

DRUGS (3)
  1. CRESTOR [Suspect]
     Indication: BLOOD CHOLESTEROL INCREASED
     Dosage: 5 MG QD PO
     Route: 048
     Dates: start: 20060801
  2. CENTRUM [Concomitant]
  3. CALCIUM [Concomitant]

REACTIONS (2)
  - BONE PAIN [None]
  - MYALGIA [None]
